FAERS Safety Report 8558674 (Version 3)
Quarter: 2012Q4

REPORT INFORMATION
  Report Type: 
  Country: VE (occurrence: VE)
  Receive Date: 20120511
  Receipt Date: 20121113
  Transmission Date: 20130627
  Serious: Yes (Death, Hospitalization)
  Sender: FDA-Public Use
  Company Number: VE-ROCHE-1067631

PATIENT
  Age: 55 Year
  Sex: Female

DRUGS (2)
  1. XOLAIR [Suspect]
     Indication: ASTHMA
     Route: 058
     Dates: start: 201110
  2. XOLAIR [Suspect]
     Dosage: 4 ampoules
     Route: 042
     Dates: start: 201203

REACTIONS (2)
  - Respiratory failure [Fatal]
  - Incorrect route of drug administration [Unknown]
